FAERS Safety Report 6092412-8 (Version None)
Quarter: 2009Q1

REPORT INFORMATION
  Report Type: 
  Country: None (occurrence: None)
  Receive Date: 20090225
  Receipt Date: 20090220
  Transmission Date: 20090719
  Serious: Yes (Death, Hospitalization)
  Sender: FDA-Public Use
  Company Number: PHHY2008MX04725

PATIENT
  Sex: Female

DRUGS (1)
  1. DIOVAN HCT [Suspect]
     Indication: HYPERTENSION
     Dosage: 160/12.5 MG PER DAY
     Route: 048
     Dates: start: 20070101, end: 20080329

REACTIONS (3)
  - CHEST PAIN [None]
  - DEATH [None]
  - HICCUPS [None]
